FAERS Safety Report 6430611-3 (Version None)
Quarter: 2009Q4

REPORT INFORMATION
  Report Type: 
  Country: None (occurrence: None)
  Receive Date: 20091106
  Receipt Date: 20091031
  Transmission Date: 20100525
  Serious: Yes (Other)
  Sender: FDA-Public Use
  Company Number: A0815137A

PATIENT
  Age: 23 Year
  Sex: Male

DRUGS (1)
  1. PAXIL CR [Suspect]
     Indication: ANXIETY
     Dosage: 25MG TWICE PER DAY
     Route: 048
     Dates: start: 20040101

REACTIONS (5)
  - CONVULSION [None]
  - FALL [None]
  - INSOMNIA [None]
  - LOSS OF CONSCIOUSNESS [None]
  - PHOTOPSIA [None]
